FAERS Safety Report 17821397 (Version 3)
Quarter: 2020Q4

REPORT INFORMATION
  Report Type: Spontaneous
  Country: AU (occurrence: AU)
  Receive Date: 20200525
  Receipt Date: 20201019
  Transmission Date: 20210113
  Serious: Yes (Other)
  Sender: FDA-Public Use
  Company Number: AU-SHIRE-AU202016440

PATIENT

DRUGS (9)
  1. 476 (MESALAZINE/MESALAMINE) [Suspect]
     Active Substance: MESALAMINE
     Indication: COLITIS ULCERATIVE
     Route: 065
  2. INFLIXIMAB [Suspect]
     Active Substance: INFLIXIMAB
     Indication: COLITIS ULCERATIVE
     Route: 065
  3. VEDOLIZUMAB [Suspect]
     Active Substance: VEDOLIZUMAB
     Indication: COLITIS ULCERATIVE
     Dosage: UNK UNK, UNKNOWN
     Route: 065
  4. THIOGUANINE [Suspect]
     Active Substance: THIOGUANINE
     Indication: COLITIS ULCERATIVE
     Route: 065
  5. PREDSOL [Concomitant]
     Active Substance: PREDNISOLONE
     Indication: PRODUCT USED FOR UNKNOWN INDICATION
  6. CORTIMENT [Concomitant]
     Indication: PRODUCT USED FOR UNKNOWN INDICATION
  7. AZATHIOPRINE. [Suspect]
     Active Substance: AZATHIOPRINE
     Indication: COLITIS ULCERATIVE
     Route: 065
  8. XELJANZ [Concomitant]
     Active Substance: TOFACITINIB CITRATE
     Indication: PRODUCT USED FOR UNKNOWN INDICATION
  9. PREDNISOLONE. [Concomitant]
     Active Substance: PREDNISOLONE
     Indication: PRODUCT USED FOR UNKNOWN INDICATION

REACTIONS (6)
  - Pancreatitis [Unknown]
  - Colitis [Not Recovered/Not Resolved]
  - Drug ineffective [Unknown]
  - Immune thrombocytopenia [Unknown]
  - Thrombocytopenia [Unknown]
  - Drug intolerance [Unknown]
